FAERS Safety Report 8630925 (Version 2)
Quarter: 2012Q4

REPORT INFORMATION
  Report Type: 
  Country: IE (occurrence: IE)
  Receive Date: 20120622
  Receipt Date: 20120917
  Transmission Date: 20130627
  Serious: Yes (Hospitalization, Other)
  Sender: FDA-Public Use
  Company Number: PHFR2012IE003576

PATIENT
  Age: 55 Year
  Sex: Male

DRUGS (5)
  1. CLOZARIL [Suspect]
     Indication: SCHIZOPHRENIA
     Dosage: UNK UKN, UNK
     Route: 048
     Dates: start: 19941123
  2. CLOZARIL [Suspect]
     Dosage: 600 mg, QD
     Route: 048
  3. AMISULPRIDE [Concomitant]
     Indication: SCHIZOPHRENIA
     Dosage: 1200 mg, (daily)
     Route: 048
     Dates: start: 201005, end: 201206
  4. ZOPICLONE [Concomitant]
     Indication: INSOMNIA
     Dosage: 12.75 mg, (daily)
     Route: 048
     Dates: start: 201109
  5. CLONAZEPAM [Concomitant]
     Indication: ANXIETY
     Dosage: 0.75 mg, (three times a day)
     Route: 048
     Dates: start: 201109

REACTIONS (4)
  - Prostatomegaly [Not Recovered/Not Resolved]
  - Renal impairment [Unknown]
  - Neutrophil count increased [Unknown]
  - White blood cell count increased [Unknown]
